FAERS Safety Report 22200933 (Version 1)
Quarter: 2023Q2

REPORT INFORMATION
  Report Type: Spontaneous
  Country: MX (occurrence: MX)
  Receive Date: 20230412
  Receipt Date: 20230412
  Transmission Date: 20230722
  Serious: Yes (Hospitalization)
  Sender: FDA-Public Use
  Company Number: MX-BAYER-2023A047360

PATIENT
  Age: 65 Year
  Sex: Male

DRUGS (1)
  1. RIVAROXABAN [Suspect]
     Active Substance: RIVAROXABAN
     Indication: Product used for unknown indication
     Dosage: ONE 20 MG TABLET EVERY 24 HOURS
     Route: 048

REACTIONS (3)
  - Body temperature increased [Unknown]
  - Hyponatraemia [Unknown]
  - Haemorrhage [Unknown]
